FAERS Safety Report 5189123-X (Version None)
Quarter: 2006Q4

REPORT INFORMATION
  Report Type: 
  Country: None (occurrence: None)
  Receive Date: 20061221
  Receipt Date: 20061011
  Transmission Date: 20070319
  Serious: No
  Sender: FDA-Public Use
  Company Number: US-AMGEN-US196720

PATIENT
  Sex: Female

DRUGS (3)
  1. ENBREL [Suspect]
     Indication: PSORIATIC ARTHROPATHY
     Route: 058
     Dates: start: 20061004
  2. ARAVA [Concomitant]
     Route: 048
     Dates: start: 20060101
  3. SORIATANE [Concomitant]
     Route: 048
     Dates: start: 20060901

REACTIONS (1)
  - INJECTION SITE IRRITATION [None]
